FAERS Safety Report 5924338-1 (Version None)
Quarter: 2008Q3

REPORT INFORMATION
  Report Type: 
  Country: None (occurrence: None)
  Receive Date: 20080909
  Receipt Date: 20080214
  Transmission Date: 20090109
  Serious: Yes (Hospitalization)
  Sender: FDA-Public Use
  Company Number: 163-20785-08020792

PATIENT
  Age: 66 Year
  Sex: Female
  Weight: 76.36 kg

DRUGS (1)
  1. THALOMID [Suspect]
     Indication: UTERINE CANCER
     Dosage: 200 MG, EVERY DAY, ORAL
     Route: 048
     Dates: start: 20080124, end: 20080209

REACTIONS (2)
  - DYSPNOEA [None]
  - HAEMOGLOBIN DECREASED [None]
